FAERS Safety Report 20063977 (Version 6)
Quarter: 2023Q1

REPORT INFORMATION
  Report Type: Spontaneous
  Country: US (occurrence: US)
  Receive Date: 20211112
  Receipt Date: 20230217
  Transmission Date: 20230417
  Serious: Yes (Hospitalization, Disabling, Other)
  Sender: FDA-Public Use
  Company Number: US-ORGANON-O2111USA001154

PATIENT
  Sex: Male
  Weight: 80 kg

DRUGS (1)
  1. SINGULAIR [Suspect]
     Active Substance: MONTELUKAST SODIUM
     Indication: Rhinitis allergic
     Dosage: 10 MG TABLET THAT EVENING
     Route: 048
     Dates: start: 20191106

REACTIONS (28)
  - Neuropsychiatric symptoms [Recovered/Resolved]
  - Psychotic disorder [Recovered/Resolved]
  - Delusion [Recovered/Resolved]
  - Post-traumatic stress disorder [Recovered/Resolved]
  - Major depression [Recovered/Resolved]
  - Bipolar disorder [Recovered/Resolved]
  - Anxiety disorder [Recovered/Resolved]
  - Hallucination [Recovered/Resolved]
  - Insomnia [Recovered/Resolved]
  - Suicidal behaviour [Recovered/Resolved]
  - Schizophrenia [Recovered/Resolved]
  - Alcohol poisoning [Recovered/Resolved]
  - Drug abuse [Recovered/Resolved]
  - Catatonia [Recovered/Resolved]
  - Acute psychosis [Recovered/Resolved]
  - Agitation [Recovered/Resolved]
  - Affective disorder [Recovered/Resolved]
  - Seizure [Unknown]
  - Weight increased [Recovered/Resolved]
  - Confusional state [Unknown]
  - Thought blocking [Unknown]
  - Speech disorder [Unknown]
  - Abnormal behaviour [Unknown]
  - Paranoia [Unknown]
  - Anxiety [Unknown]
  - Nightmare [Recovered/Resolved]
  - Asthenia [Recovered/Resolved]
  - Headache [Unknown]

NARRATIVE: CASE EVENT DATE: 20191101
